FAERS Safety Report 22268828 (Version 1)
Quarter: 2023Q2

REPORT INFORMATION
  Report Type: Spontaneous
  Country: IT (occurrence: IT)
  Receive Date: 20230501
  Receipt Date: 20230501
  Transmission Date: 20230721
  Serious: Yes (Other)
  Sender: FDA-Public Use
  Company Number: IT-002147023-NVSC2023IT088832

PATIENT
  Sex: Female

DRUGS (5)
  1. MAYZENT [Suspect]
     Active Substance: SIPONIMOD
     Indication: Multiple sclerosis
     Dosage: UNK
     Route: 065
  2. BISOPROLOL FUMARATE [Concomitant]
     Active Substance: BISOPROLOL FUMARATE
     Indication: Product used for unknown indication
     Dosage: 1 DOSAGE FORM, QD (8 AM)
     Route: 065
  3. BACLOFEN [Concomitant]
     Active Substance: BACLOFEN
     Indication: Product used for unknown indication
     Dosage: 2 DOSAGE FORM, QD (8 AM)
     Route: 065
  4. BACLOFEN [Concomitant]
     Active Substance: BACLOFEN
     Dosage: 2 DOSAGE FORM, QD (8 PM)
     Route: 065
  5. DULOXETINA AUROVITAS [Concomitant]
     Indication: Product used for unknown indication
     Dosage: 1 DOSAGE FORM, QD (8 AM)
     Route: 065

REACTIONS (8)
  - Seizure [Unknown]
  - Multiple sclerosis [Unknown]
  - Dysphagia [Unknown]
  - Paraparesis [Unknown]
  - Decreased vibratory sense [Unknown]
  - Chromaturia [Unknown]
  - White blood cell count decreased [Unknown]
  - Lymphocyte count decreased [Unknown]
